FAERS Safety Report 17174096 (Version 2)
Quarter: 2020Q1

REPORT INFORMATION
  Report Type: Spontaneous
  Country: US (occurrence: US)
  Receive Date: 20191219
  Receipt Date: 20200218
  Transmission Date: 20200409
  Serious: No
  Sender: FDA-Public Use
  Company Number: US-PFIZER INC-2019546600

PATIENT
  Age: 31 Year
  Sex: Female

DRUGS (1)
  1. PREGABALIN. [Suspect]
     Active Substance: PREGABALIN
     Indication: FIBROMYALGIA
     Dosage: UNK

REACTIONS (6)
  - Restless legs syndrome [Recovering/Resolving]
  - Fibromyalgia [Unknown]
  - Pica [Unknown]
  - Microcytic anaemia [Unknown]
  - Iron deficiency anaemia [Unknown]
  - Drug ineffective [Unknown]
